FAERS Safety Report 4544912-7 (Version None)
Quarter: 2004Q4

REPORT INFORMATION
  Report Type: 
  Country: None (occurrence: None)
  Receive Date: 20041230
  Receipt Date: 20041217
  Transmission Date: 20050328
  Serious: Yes (Other)
  Sender: FDA-Public Use
  Company Number: 2004115642

PATIENT
  Age: 59 Year
  Sex: Female
  Weight: 58.0604 kg

DRUGS (5)
  1. CELEBREX [Suspect]
     Indication: OSTEOARTHRITIS
     Dosage: 400 MG (200 MG, 2 IN 1 D), ORAL
     Route: 048
  2. CAFFEINE (CAFFEINE) [Suspect]
     Indication: ILL-DEFINED DISORDER
     Dates: end: 20040101
  3. ALL OTHER NON-THERAPEUTIC  PRODUCTS [Suspect]
     Indication: ILL-DEFINED DISORDER
     Dates: end: 20040101
  4. OXYCODONE HCL [Concomitant]
  5. VITAMINS (VITAMINS) [Concomitant]

REACTIONS (4)
  - CHRONIC OBSTRUCTIVE AIRWAYS DISEASE [None]
  - DYSPEPSIA [None]
  - LUNG NEOPLASM MALIGNANT [None]
  - WEIGHT INCREASED [None]
